FAERS Safety Report 9857611 (Version 2)
Quarter: 2014Q1

REPORT INFORMATION
  Report Type: Spontaneous
  Country: BR (occurrence: BR)
  Receive Date: 20140131
  Receipt Date: 20140307
  Transmission Date: 20141002
  Serious: Yes (Hospitalization)
  Sender: FDA-Public Use
  Company Number: BR-ASTRAZENECA-2014SE06190

PATIENT
  Sex: Male
  Weight: 95 kg

DRUGS (9)
  1. SELOZOK [Suspect]
     Indication: BLOOD PRESSURE ABNORMAL
     Dosage: DAILY
     Route: 048
  2. OMEPRAZOLE [Suspect]
     Indication: GASTRIC DISORDER
     Dosage: DAILY
     Route: 048
  3. TREZOR (ROSUVASTATIN) [Suspect]
     Indication: BLOOD CHOLESTEROL ABNORMAL
     Dosage: DAILY
     Route: 048
  4. BRILINTA [Suspect]
     Indication: INFARCTION
     Route: 048
     Dates: start: 201301
  5. PROCOLARAN [Concomitant]
     Indication: CARDIAC DISORDER
  6. METFORMIN HYDROCHLORIDE [Concomitant]
     Indication: DIABETES MELLITUS
  7. SOMALGIN CARDIO [Concomitant]
  8. FLUOXETINE HYDROCHLORIDE [Concomitant]
     Indication: DIABETES MELLITUS
  9. FLUOXETINE HYDROCHLORIDE [Concomitant]
     Indication: ANXIETY

REACTIONS (3)
  - Infarction [Unknown]
  - Myocardial infarction [Recovered/Resolved]
  - Aortic aneurysm [Recovering/Resolving]
